FAERS Safety Report 23397181 (Version 4)
Quarter: 2024Q1

REPORT INFORMATION
  Report Type: Spontaneous
  Country: CN (occurrence: CN)
  Receive Date: 20240112
  Receipt Date: 20240329
  Transmission Date: 20240410
  Serious: Yes (Death, Hospitalization, Other)
  Sender: FDA-Public Use
  Company Number: CN-JNJFOC-20240111951

PATIENT
  Age: 74 Year
  Sex: Male

DRUGS (3)
  1. DARZALEX [Suspect]
     Active Substance: DARATUMUMAB
     Indication: Plasma cell myeloma
     Dosage: 400MG/20ML/BOTTLE
     Route: 065
  2. MEROPENEM [Concomitant]
     Active Substance: MEROPENEM
     Indication: Infection
     Dates: start: 20231230, end: 20240103
  3. HUMAN RED BLOOD CELL [Concomitant]
     Active Substance: HUMAN RED BLOOD CELL
     Route: 065

REACTIONS (5)
  - Cardiac failure [Fatal]
  - Infusion related reaction [Fatal]
  - Hyperkalaemia [Unknown]
  - Urinary retention [Unknown]
  - Anaemia [Unknown]

NARRATIVE: CASE EVENT DATE: 20240103
